FAERS Safety Report 8974265 (Version 1)
Quarter: 2012Q4

REPORT INFORMATION
  Report Type: Spontaneous
  Country: US (occurrence: None)
  Receive Date: 20121217
  Receipt Date: 20121217
  Transmission Date: 20130627
  Serious: Yes (Other)
  Sender: FDA-Public Use
  Company Number: None

PATIENT
  Age: 63 Year
  Sex: Male
  Weight: 65.32 kg

DRUGS (1)
  1. ACTEMRA [Suspect]
     Indication: RA
     Dates: start: 20100701, end: 20100701

REACTIONS (8)
  - Headache [None]
  - Infusion related reaction [None]
  - Hypertension [None]
  - Tremor [None]
  - Tremor [None]
  - Disorientation [None]
  - Chills [None]
  - Sensory disturbance [None]
